FAERS Safety Report 20247595 (Version 1)
Quarter: 2021Q4

REPORT INFORMATION
  Report Type: Spontaneous
  Country: US (occurrence: None)
  Receive Date: 20211228
  Receipt Date: 20211228
  Transmission Date: 20220303
  Serious: Yes (Death)
  Sender: FDA-Public Use
  Company Number: None

PATIENT
  Age: 63 Year
  Sex: Female

DRUGS (1)
  1. METHOTREXATE [Suspect]
     Active Substance: METHOTREXATE
     Dosage: OTHER FREQUENCY : UNKNOWN;?
     Route: 058
     Dates: start: 20210101

REACTIONS (1)
  - Death [None]

NARRATIVE: CASE EVENT DATE: 20211226
